FAERS Safety Report 25482908 (Version 1)
Quarter: 2025Q2

REPORT INFORMATION
  Report Type: Spontaneous
  Country: CN (occurrence: CN)
  Receive Date: 20250626
  Receipt Date: 20250626
  Transmission Date: 20250716
  Serious: Yes (Other)
  Sender: BAXTER
  Company Number: None

PATIENT
  Age: 37 Year
  Sex: Female
  Weight: 46.6 kg

DRUGS (12)
  1. CYCLOPHOSPHAMIDE [Suspect]
     Active Substance: CYCLOPHOSPHAMIDE
     Indication: Breast cancer female
     Dosage: 0.8 G, QD, IVGTT ONCE
     Route: 041
     Dates: start: 20250430, end: 20250430
  2. DEXTROSE [Suspect]
     Active Substance: DEXTROSE MONOHYDRATE
     Route: 041
     Dates: start: 20250521
  3. DEXTROSE [Suspect]
     Active Substance: DEXTROSE MONOHYDRATE
     Route: 041
     Dates: start: 20250528
  4. DEXTROSE [Suspect]
     Active Substance: DEXTROSE MONOHYDRATE
     Route: 041
     Dates: start: 20250606
  5. DEXTROSE [Suspect]
     Active Substance: DEXTROSE MONOHYDRATE
     Route: 041
     Dates: start: 20250618
  6. EPIRUBICIN [Suspect]
     Active Substance: EPIRUBICIN
     Indication: Breast cancer female
     Dosage: 120 MG, QD,  IVGTT ONCE
     Route: 041
     Dates: start: 20250430, end: 20250430
  7. SODIUM CHLORIDE [Suspect]
     Active Substance: SODIUM CHLORIDE
     Indication: Medication dilution
     Dosage: 100 ML, QD, IVGTT ONCE (ENDOXAN + 0.9% NS)
     Route: 041
     Dates: start: 20250430, end: 20250430
  8. SODIUM CHLORIDE [Suspect]
     Active Substance: SODIUM CHLORIDE
     Dosage: 100 ML, QD, IVGTT ONCE (PHARMORUBICIN + 0.9% NS)
     Route: 041
     Dates: start: 20250430, end: 20250430
  9. PACLITAXEL [Concomitant]
     Active Substance: PACLITAXEL
     Indication: Breast cancer female
     Route: 041
     Dates: start: 20250521
  10. PACLITAXEL [Concomitant]
     Active Substance: PACLITAXEL
     Route: 041
     Dates: start: 20250528
  11. PACLITAXEL [Concomitant]
     Active Substance: PACLITAXEL
     Route: 041
     Dates: start: 20250606
  12. PACLITAXEL [Concomitant]
     Active Substance: PACLITAXEL
     Route: 041
     Dates: start: 20250618

REACTIONS (1)
  - Myelosuppression [Recovering/Resolving]

NARRATIVE: CASE EVENT DATE: 20250508
